FAERS Safety Report 24795356 (Version 2)
Quarter: 2025Q1

REPORT INFORMATION
  Report Type: Spontaneous
  Country: PL (occurrence: PL)
  Receive Date: 20241231
  Receipt Date: 20250106
  Transmission Date: 20250408
  Serious: Yes (Hospitalization)
  Sender: MYLAN
  Company Number: PL-TEVA-VS-3275143

PATIENT
  Age: 26 Year
  Sex: Female

DRUGS (20)
  1. SERTRALINE [Interacting]
     Active Substance: SERTRALINE HYDROCHLORIDE
     Indication: Depression
     Route: 065
  2. TIANEPTINE [Suspect]
     Active Substance: TIANEPTINE
     Indication: Product used for unknown indication
     Route: 065
  3. AMOXICILLIN\CLAVULANIC ACID [Suspect]
     Active Substance: AMOXICILLIN\CLAVULANIC ACID
     Indication: Product used for unknown indication
     Route: 065
  4. ALPRAZOLAM [Suspect]
     Active Substance: ALPRAZOLAM
     Indication: Product used for unknown indication
     Dosage: 0.5 MILLIGRAM, TID
     Route: 065
  5. HYDROXYZINE [Suspect]
     Active Substance: HYDROXYZINE HYDROCHLORIDE
     Indication: Product used for unknown indication
     Route: 065
  6. FURAZIDINE [Suspect]
     Active Substance: FURAZIDINE
     Indication: Product used for unknown indication
     Route: 065
  7. IBUPROFEN [Suspect]
     Active Substance: IBUPROFEN
     Indication: Product used for unknown indication
     Route: 065
  8. FLUCONAZOLE [Suspect]
     Active Substance: FLUCONAZOLE
     Indication: Product used for unknown indication
     Route: 048
  9. ACETAMINOPHEN [Suspect]
     Active Substance: ACETAMINOPHEN
     Indication: Product used for unknown indication
     Route: 065
  10. CETIRIZINE [Suspect]
     Active Substance: CETIRIZINE HYDROCHLORIDE
     Indication: Product used for unknown indication
     Route: 065
  11. CIPROFLOXACIN [Suspect]
     Active Substance: CIPROFLOXACIN
     Indication: Product used for unknown indication
     Route: 065
  12. CLOTRIMAZOLE [Suspect]
     Active Substance: CLOTRIMAZOLE
     Indication: Product used for unknown indication
     Route: 067
  13. ACETAMINOPHEN\CODEINE PHOSPHATE [Suspect]
     Active Substance: ACETAMINOPHEN\CODEINE PHOSPHATE
     Indication: Product used for unknown indication
     Route: 065
  14. QUERCUS ROBUR FLOWER [Suspect]
     Active Substance: QUERCUS ROBUR FLOWER
     Indication: Product used for unknown indication
     Route: 065
  15. NATAMYCIN [Suspect]
     Active Substance: NATAMYCIN
     Indication: Product used for unknown indication
     Route: 067
  16. CRANBERRY [Suspect]
     Active Substance: CRANBERRY
     Indication: Product used for unknown indication
     Route: 065
  17. GENTAMICIN [Suspect]
     Active Substance: GENTAMICIN
     Indication: Product used for unknown indication
     Route: 065
  18. HERBALS\WITHANIA SOMNIFERA ROOT [Interacting]
     Active Substance: HERBALS\WITHANIA SOMNIFERA ROOT
     Indication: Product used for unknown indication
     Route: 065
  19. FURAZOLIDONE [Suspect]
     Active Substance: FURAZOLIDONE
     Indication: Product used for unknown indication
     Route: 065
  20. CODEINE [Suspect]
     Active Substance: CODEINE
     Indication: Product used for unknown indication
     Route: 065

REACTIONS (5)
  - Depression [Recovered/Resolved]
  - Drug interaction [Unknown]
  - Persistent genital arousal disorder [Recovered/Resolved]
  - Drug ineffective [Unknown]
  - Condition aggravated [Recovered/Resolved]
